FAERS Safety Report 10221007 (Version 1)
Quarter: 2014Q2

REPORT INFORMATION
  Report Type: Spontaneous
  Country: US (occurrence: None)
  Receive Date: 20140605
  Receipt Date: 20140605
  Transmission Date: 20141212
  Serious: Yes (Death, Life-Threatening, Hospitalization, Disabling)
  Sender: FDA-Public Use
  Company Number: None

PATIENT
  Age: 68 Year
  Sex: Male
  Weight: 154 kg

DRUGS (19)
  1. XARELTO [Suspect]
     Indication: THROMBOSIS PROPHYLAXIS
     Route: 048
     Dates: start: 20131112, end: 20140601
  2. XARELTO [Suspect]
     Indication: ATRIAL FIBRILLATION
     Route: 048
     Dates: start: 20131112, end: 20140601
  3. FLOMAX [Concomitant]
  4. IRON [Concomitant]
  5. AMIODARONE [Concomitant]
  6. CLONIDINE [Concomitant]
  7. ATENOLOL [Concomitant]
  8. HYDROCODONE/ACETAMINOPHEN [Concomitant]
  9. LISINOPRIL [Concomitant]
  10. TORSEMIDE [Concomitant]
  11. FINASTERIDE [Concomitant]
  12. LEXAPRO [Concomitant]
  13. HUMALOG KWIKPEN [Concomitant]
  14. LEVEMIR FLEXPEN [Concomitant]
  15. DOCUSATE SODIUM [Concomitant]
  16. SENNA [Concomitant]
  17. METOCLOPRAMIDE [Concomitant]
  18. NOVOLOG [Concomitant]
  19. VITAMIN D [Concomitant]

REACTIONS (6)
  - Fall [None]
  - Head injury [None]
  - Nausea [None]
  - Vomiting [None]
  - Subdural haemorrhage [None]
  - Brain midline shift [None]
